FAERS Safety Report 4342695-7 (Version None)
Quarter: 2004Q2

REPORT INFORMATION
  Report Type: 
  Country: None (occurrence: None)
  Receive Date: 20040416
  Receipt Date: 20040401
  Transmission Date: 20050107
  Serious: Yes (Hospitalization)
  Sender: FDA-Public Use
  Company Number: 205109

PATIENT
  Age: 54 Year
  Sex: Male
  Weight: 74 kg

DRUGS (1)
  1. MABTHERA (RITUXIMAB) CONC FOR SOLUTION FOR INFUSION [Suspect]
     Indication: MANTLE CELL LYMPHOMA
     Dosage: 1/MONTH, INTRAVENOUS
     Route: 042
     Dates: start: 20021101, end: 20031219

REACTIONS (26)
  - ALPHA 2 GLOBULIN INCREASED [None]
  - ANAEMIA [None]
  - ARTHRITIS [None]
  - ATRIOVENTRICULAR BLOCK FIRST DEGREE [None]
  - BLOOD ALKALINE PHOSPHATASE INCREASED [None]
  - BURSITIS [None]
  - C-REACTIVE PROTEIN INCREASED [None]
  - DERMATITIS [None]
  - DYSPNOEA EXERTIONAL [None]
  - ERYTHEMA [None]
  - GAMMA-GLUTAMYLTRANSFERASE INCREASED [None]
  - HAPTOGLOBIN INCREASED [None]
  - IMMUNOGLOBULINS DECREASED [None]
  - JOINT SWELLING [None]
  - LICHENIFICATION [None]
  - LYMPHOPENIA [None]
  - MALAISE [None]
  - NIGHT SWEATS [None]
  - POLYARTHRITIS [None]
  - PROTEIN TOTAL DECREASED [None]
  - SINUS TACHYCARDIA [None]
  - SKIN DESQUAMATION [None]
  - SKIN DISCOLOURATION [None]
  - THROMBOCYTHAEMIA [None]
  - VASCULITIS [None]
  - WEIGHT DECREASED [None]
